FAERS Safety Report 9656659 (Version 1)
Quarter: 2013Q4

REPORT INFORMATION
  Report Type: Spontaneous
  Country: FI (occurrence: None)
  Receive Date: 20131028
  Receipt Date: 20131028
  Transmission Date: 20140711
  Serious: Yes (Other)
  Sender: FDA-Public Use
  Company Number: 1895845

PATIENT
  Age: 60 Year
  Sex: Female
  Weight: 69 kg

DRUGS (9)
  1. OXALIPLATIN [Suspect]
     Indication: RECTAL CANCER METASTATIC
     Route: 042
     Dates: start: 20130710
  2. METOCLOPRAMIDE [Concomitant]
  3. DEXAMETHASONE [Concomitant]
  4. PANTOPRAZOLE [Concomitant]
  5. PALONOSETRON HYDROCHLORIDE [Concomitant]
  6. GLUCOSE [Concomitant]
  7. GRANISETRON [Concomitant]
  8. CAPECITABINE [Concomitant]
  9. PARACETAMOL/CODEINE [Concomitant]

REACTIONS (4)
  - Malaise [None]
  - Dizziness [None]
  - Hypotension [None]
  - Neutrophil count decreased [None]
